FAERS Safety Report 11298455 (Version 1)
Quarter: 2015Q3

REPORT INFORMATION
  Report Type: Spontaneous
  Country: US (occurrence: US)
  Receive Date: 20150722
  Receipt Date: 20150722
  Transmission Date: 20151125
  Serious: No
  Sender: FDA-Public Use
  Company Number: US-ELI_LILLY_AND_COMPANY-US201110007858

PATIENT
  Sex: Female

DRUGS (5)
  1. ATENOLOL. [Concomitant]
     Active Substance: ATENOLOL
  2. EFFIENT [Suspect]
     Active Substance: PRASUGREL HYDROCHLORIDE
     Indication: STENT PLACEMENT
     Dosage: 10 MG, UNK
     Dates: start: 20110926
  3. DIGOXIN. [Concomitant]
     Active Substance: DIGOXIN
  4. POTASSIUM [Concomitant]
     Active Substance: POTASSIUM
  5. WATER PILLS [Concomitant]
     Active Substance: UNSPECIFIED INGREDIENT

REACTIONS (7)
  - Fatigue [Unknown]
  - Asthenia [Unknown]
  - Eye disorder [Unknown]
  - Ear pain [Unknown]
  - Vision blurred [Unknown]
  - Drug prescribing error [Unknown]
  - Visual acuity reduced [Unknown]
